FAERS Safety Report 19612971 (Version 1)
Quarter: 2021Q3

REPORT INFORMATION
  Report Type: Spontaneous
  Country: US (occurrence: US)
  Receive Date: 20210723
  Receipt Date: 20210723
  Transmission Date: 20211014
  Serious: Yes (Hospitalization)
  Sender: FDA-Public Use
  Company Number: None

PATIENT
  Age: 65 Year
  Sex: Male

DRUGS (1)
  1. BIKTARVY [Suspect]
     Active Substance: BICTEGRAVIR SODIUM\EMTRICITABINE\TENOFOVIR ALAFENAMIDE FUMARATE
     Dosage: ?          OTHER DOSE:50/200/25 MG;?
     Route: 048
     Dates: start: 201909

REACTIONS (3)
  - Cardiac disorder [None]
  - Hypoaesthesia oral [None]
  - Back pain [None]

NARRATIVE: CASE EVENT DATE: 20210719
